FAERS Safety Report 16938220 (Version 1)
Quarter: 2019Q4

REPORT INFORMATION
  Report Type: Report from Study
  Country: US (occurrence: US)
  Receive Date: 20191018
  Receipt Date: 20191018
  Transmission Date: 20200122
  Serious: Yes (Death)
  Sender: FDA-Public Use
  Company Number: US-EXELIXIS-CABO-19024485

PATIENT
  Sex: Male
  Weight: 61 kg

DRUGS (7)
  1. FISH OIL [Concomitant]
     Active Substance: FISH OIL
  2. FLAXSEED [Concomitant]
     Active Substance: FLAX SEED
  3. CABOMETYX [Suspect]
     Active Substance: CABOZANTINIB S-MALATE
     Indication: RENAL CANCER
     Dosage: 40 MG, QD
     Route: 048
  4. VITAMIN D3 [Concomitant]
     Active Substance: CHOLECALCIFEROL
  5. LORATADINE. [Concomitant]
     Active Substance: LORATADINE
  6. VITAMIN C [Concomitant]
     Active Substance: ASCORBIC ACID
  7. COQ10 [Concomitant]
     Active Substance: UBIDECARENONE

REACTIONS (1)
  - Death [Fatal]
